FAERS Safety Report 15776808 (Version 1)
Quarter: 2018Q4

REPORT INFORMATION
  Report Type: Spontaneous
  Country: US (occurrence: US)
  Receive Date: 20181229
  Receipt Date: 20181229
  Transmission Date: 20190205
  Serious: Yes (Hospitalization)
  Sender: FDA-Public Use
  Company Number: None

PATIENT
  Age: 29 Year
  Sex: Male
  Weight: 72.9 kg

DRUGS (1)
  1. CIPROFLOXACIN. [Suspect]
     Active Substance: CIPROFLOXACIN
     Indication: GASTRIC INFECTION

REACTIONS (13)
  - Tension headache [None]
  - Dyspepsia [None]
  - Food intolerance [None]
  - Weight fluctuation [None]
  - Crying [None]
  - Neuralgia [None]
  - Cow^s milk intolerance [None]
  - Magnesium deficiency [None]
  - Emotional distress [None]
  - Fatigue [None]
  - Pain [None]
  - Tension [None]
  - Burning sensation [None]

NARRATIVE: CASE EVENT DATE: 20180701
